FAERS Safety Report 8854141 (Version 1)
Quarter: 2012Q4

REPORT INFORMATION
  Report Type: Spontaneous
  Country: US (occurrence: None)
  Receive Date: 20121019
  Receipt Date: 20121019
  Transmission Date: 20130627
  Serious: Yes (Hospitalization)
  Sender: FDA-Public Use
  Company Number: None

PATIENT
  Age: 64 Year
  Sex: Male

DRUGS (1)
  1. TRACLEER [Suspect]
     Dates: start: 20101022, end: 20120330

REACTIONS (4)
  - Aspartate aminotransferase increased [None]
  - Eosinophilia [None]
  - Blood bilirubin increased [None]
  - Drug-induced liver injury [None]
